FAERS Safety Report 5223752-X (Version None)
Quarter: 2007Q1

REPORT INFORMATION
  Report Type: 
  Country: None (occurrence: None)
  Receive Date: 20070125
  Receipt Date: 20070117
  Transmission Date: 20070707
  Serious: Yes (Hospitalization)
  Sender: FDA-Public Use
  Company Number: HQWYE656317JAN07

PATIENT
  Age: 53 Year
  Sex: Female

DRUGS (5)
  1. PROPRANOLOL HYDROCHLORIDE [Suspect]
     Dosage: 40 MG 1X PER 1 DAY ORAL
     Route: 048
  2. ALDACTAZINE (ALTIZIDINE/SPIRONOLACTONE,) [Suspect]
     Dosage: 1 DOSAGE FORM 1X PER 1 DAY ORAL
     Route: 048
  3. AMLODIPINE BESYLATE [Concomitant]
     Dosage: 5 MG 1X PER 1 DAY ORAL
     Route: 048
  4. COTAREG (HYDROCHLOROTHIAZIDE/VALSARTAN,) [Suspect]
     Dosage: 80 MG/12.5 MG DAILY ORAL
     Route: 048
  5. CRESTOR [Suspect]
     Dosage: 10 MG 1X PER 1 DAY ORAL
     Route: 048

REACTIONS (1)
  - PULMONARY EMBOLISM [None]
